FAERS Safety Report 14649660 (Version 3)
Quarter: 2018Q2

REPORT INFORMATION
  Report Type: Spontaneous
  Country: JO (occurrence: JO)
  Receive Date: 20180316
  Receipt Date: 20180402
  Transmission Date: 20180711
  Serious: Yes (Death, Hospitalization, Other)
  Sender: FDA-Public Use
  Company Number: PHHY2018JO045115

PATIENT
  Age: 40 Year
  Sex: Female

DRUGS (1)
  1. TASIGNA [Suspect]
     Active Substance: NILOTINIB
     Indication: CHRONIC MYELOID LEUKAEMIA
     Dosage: 300 MG, BID
     Route: 048
     Dates: start: 201507

REACTIONS (15)
  - Hypoxia [Unknown]
  - Cardiac arrest [Unknown]
  - Sudden death [Fatal]
  - Dyspepsia [Unknown]
  - Supraventricular tachycardia [Unknown]
  - Encephalopathy [Unknown]
  - Palpitations [Unknown]
  - Atrial fibrillation [Unknown]
  - Bradycardia [Unknown]
  - Dyspnoea [Unknown]
  - Ventricular fibrillation [Unknown]
  - Loss of consciousness [Unknown]
  - Musculoskeletal stiffness [Unknown]
  - Seizure [Unknown]
  - Dizziness [Unknown]
